FAERS Safety Report 20870124 (Version 1)
Quarter: 2022Q2

REPORT INFORMATION
  Report Type: Spontaneous
  Country: CA (occurrence: CA)
  Receive Date: 20220525
  Receipt Date: 20220525
  Transmission Date: 20220720
  Serious: Yes (Other)
  Sender: FDA-Public Use
  Company Number: CA-TEVA-2022-CA-2038934

PATIENT
  Age: 78 Year
  Sex: Female

DRUGS (8)
  1. CEPHALEXIN [Suspect]
     Active Substance: CEPHALEXIN
     Indication: Urinary tract infection
     Dosage: 2000 MILLIGRAM DAILY;
     Route: 048
  2. APIDRA [Concomitant]
     Active Substance: INSULIN GLULISINE
  3. ATROVENT [Concomitant]
     Active Substance: IPRATROPIUM BROMIDE
     Route: 065
  4. INSULIN GLARGINE [Concomitant]
     Active Substance: INSULIN GLARGINE
  5. NIFEDIPINE [Concomitant]
     Active Substance: NIFEDIPINE
  6. PAROXETINE [Concomitant]
     Active Substance: PAROXETINE
  7. RAMIPRIL [Concomitant]
     Active Substance: RAMIPRIL
  8. ROSUVASTATIN [Concomitant]
     Active Substance: ROSUVASTATIN
     Route: 065

REACTIONS (2)
  - Pruritus [Recovered/Resolved]
  - Blood pressure decreased [Recovered/Resolved]
